FAERS Safety Report 8234847-0 (Version None)
Quarter: 2012Q1

REPORT INFORMATION
  Report Type: 
  Country: None (occurrence: None)
  Receive Date: 20120322
  Receipt Date: 20120308
  Transmission Date: 20120608
  Serious: Yes (Disabling)
  Sender: FDA-Public Use
  Company Number: DKLU1075835

PATIENT
  Age: 1 Year
  Sex: Female
  Weight: 14 kg

DRUGS (3)
  1. TOPAMAX [Suspect]
     Indication: INFANTILE SPASMS
     Dosage: FREQUENCY NOT REPORTED, ORAL
     Route: 048
  2. SABRIL [Suspect]
     Indication: INFANTILE SPASMS
     Dosage: 2 IN 1 D, ORAL
     Route: 048
     Dates: start: 20090415, end: 20100708
  3. SABRIL [Suspect]
     Indication: INFANTILE SPASMS
     Dosage: 2 IN 1 D, ORAL
     Route: 048
     Dates: start: 20081001, end: 20090101

REACTIONS (4)
  - DEVELOPMENTAL DELAY [None]
  - LETHARGY [None]
  - METABOLIC ACIDOSIS [None]
  - DECREASED APPETITE [None]
